FAERS Safety Report 9733402 (Version 1)
Quarter: 2013Q4

REPORT INFORMATION
  Report Type: Spontaneous
  Country: US (occurrence: None)
  Receive Date: 20131204
  Receipt Date: 20131204
  Transmission Date: 20140711
  Serious: Yes (Other)
  Sender: FDA-Public Use
  Company Number: None

PATIENT
  Age: 22 Year
  Sex: Female
  Weight: 44 kg

DRUGS (1)
  1. LOESTRIN 1.5/30 21 DAY [Suspect]
     Indication: CONTRACEPTION
     Route: 048
     Dates: start: 20130926, end: 20131119

REACTIONS (2)
  - Rash [None]
  - Product substitution issue [None]
